FAERS Safety Report 9051220 (Version 1)
Quarter: 2013Q1

REPORT INFORMATION
  Report Type: Spontaneous
  Country: US (occurrence: US)
  Receive Date: 20130206
  Receipt Date: 20130206
  Transmission Date: 20140127
  Serious: No
  Sender: FDA-Public Use
  Company Number: US-009507513-1302USA001402

PATIENT
  Sex: Female

DRUGS (1)
  1. DULERA [Suspect]
     Indication: ASTHMA
     Dosage: 100MCG/ 5MCG / ONE PUFF ONCE DAILY
     Route: 055

REACTIONS (5)
  - Salivary gland disorder [Recovering/Resolving]
  - Dyspnoea [Unknown]
  - Headache [Recovered/Resolved]
  - Hypertension [Unknown]
  - Drug dose omission [Unknown]
